FAERS Safety Report 8570067 (Version 12)
Quarter: 2013Q4

REPORT INFORMATION
  Report Type: Report from Study
  Country: GB (occurrence: GB)
  Receive Date: 20120518
  Receipt Date: 20131206
  Transmission Date: 20140711
  Serious: Yes (Hospitalization, Other)
  Sender: FDA-Public Use
  Company Number: GB-ROCHE-1068595

PATIENT
  Age: 84 Year
  Sex: Female
  Weight: 45.4 kg

DRUGS (6)
  1. VEMURAFENIB [Suspect]
     Indication: METASTATIC MALIGNANT MELANOMA
     Dosage: LAST DOSE PRIOR TO SAE: 12/APR/2013, 13/APR/2012
     Route: 048
     Dates: start: 20120119
  2. ATENOLOL [Concomitant]
     Route: 065
     Dates: start: 2001, end: 20120414
  3. SIMVASTATIN [Concomitant]
     Route: 065
     Dates: start: 2001
  4. NEUROFEN COLD + FLU [Concomitant]
     Route: 065
     Dates: start: 20120412
  5. DIFFLAM ORAL RINSE [Concomitant]
     Dosage: ONE/AMP MOUTH WASH
     Route: 065
     Dates: start: 20120329, end: 20120509
  6. PREDSOL [Concomitant]
     Dosage: MOUTH WASH, ONE/AMP
     Route: 065
     Dates: start: 20130329

REACTIONS (2)
  - Supraventricular tachycardia [Recovered/Resolved]
  - Squamous cell carcinoma of skin [Recovered/Resolved]
